FAERS Safety Report 4698837-7 (Version None)
Quarter: 2005Q2

REPORT INFORMATION
  Report Type: 
  Country: None (occurrence: None)
  Receive Date: 20050623
  Receipt Date: 20050610
  Transmission Date: 20051028
  Serious: Yes (Other)
  Sender: FDA-Public Use
  Company Number: 2005086872

PATIENT
  Sex: Female

DRUGS (2)
  1. LISTERINE ANTISEPTIC MOUTHWASH (MENTHOL, METHYL SALICYLATE, EUCALYPTOL [Suspect]
     Indication: HALITOSIS
     Dosage: 1 MOUTHFUL BID, ORAL TOPICAL
     Route: 061
  2. ASPIRIN [Concomitant]

REACTIONS (6)
  - ABSCESS [None]
  - BONE DISORDER [None]
  - DRUG INEFFECTIVE [None]
  - GINGIVAL DISORDER [None]
  - GINGIVITIS [None]
  - TOOTH LOSS [None]
